FAERS Safety Report 8812304 (Version 1)
Quarter: 2012Q4

REPORT INFORMATION
  Report Type: 
  Country: US (occurrence: US)
  Receive Date: 20120927
  Receipt Date: 20120927
  Transmission Date: 20130627
  Serious: Yes (Other)
  Sender: FDA-Public Use
  Company Number: US-ROCHE-1104389

PATIENT
  Sex: Female

DRUGS (3)
  1. AVASTIN [Suspect]
     Indication: BREAST CANCER FEMALE
     Route: 065
  2. HERCEPTIN [Suspect]
     Indication: BREAST CANCER FEMALE
     Route: 065
  3. NAVELBINE [Suspect]
     Indication: BREAST CANCER FEMALE

REACTIONS (2)
  - Cardiac failure congestive [Unknown]
  - Metastasis [Unknown]
